FAERS Safety Report 24276209 (Version 1)
Quarter: 2024Q3

REPORT INFORMATION
  Report Type: Spontaneous
  Country: US (occurrence: None)
  Receive Date: 20240903
  Receipt Date: 20240903
  Transmission Date: 20241017
  Serious: No
  Sender: ASTRAZENECA
  Company Number: 2024A198165

PATIENT
  Sex: Male

DRUGS (1)
  1. BYETTA [Suspect]
     Active Substance: EXENATIDE
     Dosage: 1.2ML UNKNOWN

REACTIONS (4)
  - Ocular discomfort [Unknown]
  - Device malfunction [Unknown]
  - Device use issue [Unknown]
  - Drug dose omission by device [Unknown]
